FAERS Safety Report 9155496 (Version 4)
Quarter: 2013Q3

REPORT INFORMATION
  Report Type: Spontaneous
  Country: IE (occurrence: IE)
  Receive Date: 20130311
  Receipt Date: 20130701
  Transmission Date: 20140515
  Serious: Yes (Hospitalization, Other)
  Sender: FDA-Public Use
  Company Number: IE-ASTRAZENECA-2013SE15312

PATIENT
  Age: 3 Month
  Sex: Male

DRUGS (8)
  1. PALIVIZUMAB [Suspect]
     Indication: BRONCHOPULMONARY DYSPLASIA
     Route: 030
     Dates: start: 20130117
  2. IRON [Concomitant]
  3. MULTIVITAMIN [Concomitant]
  4. ZANTAC [Concomitant]
  5. LACTULOSE [Concomitant]
  6. RANITIDINE [Concomitant]
     Route: 048
  7. GALFER [Concomitant]
     Route: 048
  8. ABIDEC [Concomitant]
     Route: 048

REACTIONS (3)
  - Bradypnoea [Recovered/Resolved]
  - Cyanosis [Recovered/Resolved]
  - Pallor [Recovered/Resolved]
